FAERS Safety Report 12946720 (Version 2)
Quarter: 2016Q4

REPORT INFORMATION
  Report Type: Report from Study
  Country: IE (occurrence: IE)
  Receive Date: 20161116
  Receipt Date: 20161226
  Transmission Date: 20170207
  Serious: Yes (Other)
  Sender: FDA-Public Use
  Company Number: PHFR2016IE009037

PATIENT
  Age: 69 Year
  Sex: Male

DRUGS (6)
  1. ULTIBRO BREEZHALER [Suspect]
     Active Substance: GLYCOPYRRONIUM\INDACATEROL
     Indication: CHRONIC OBSTRUCTIVE PULMONARY DISEASE
     Dosage: 1 DF, UNK
     Route: 055
     Dates: start: 20160121
  2. PARACETAMOL [Concomitant]
     Active Substance: ACETAMINOPHEN
     Indication: PAIN
     Dosage: 500 MG, PRN
     Route: 048
     Dates: start: 20150705
  3. NORTEM [Concomitant]
     Indication: ANXIETY
     Dosage: 20 MG, QD
     Route: 048
     Dates: start: 20140716
  4. PREGABALIN. [Concomitant]
     Active Substance: PREGABALIN
     Indication: ANXIETY
     Dosage: 75 MG, BID
     Route: 048
     Dates: start: 20160901
  5. FOSAMAX [Concomitant]
     Active Substance: ALENDRONATE SODIUM
     Indication: OSTEOPOROSIS
     Dosage: 70 MG, QW
     Route: 048
     Dates: start: 20140326
  6. CALCICHEW [Concomitant]
     Active Substance: CALCIUM CARBONATE
     Indication: VITAMIN D DEFICIENCY
     Dosage: 1 DF (500 MG+400 UNITS), BID
     Route: 048
     Dates: start: 20140305

REACTIONS (12)
  - Groin pain [Unknown]
  - Skin papilloma [Unknown]
  - Dizziness [Unknown]
  - Orthostatic hypotension [Unknown]
  - Cough [Unknown]
  - Productive cough [Unknown]
  - Headache [Unknown]
  - Gait disturbance [Unknown]
  - Sputum increased [Unknown]
  - Pain in extremity [Unknown]
  - Back pain [Unknown]
  - Crepitations [Unknown]

NARRATIVE: CASE EVENT DATE: 20160122
